FAERS Safety Report 5955463-7 (Version None)
Quarter: 2008Q4

REPORT INFORMATION
  Report Type: 
  Country: None (occurrence: None)
  Receive Date: 20081117
  Receipt Date: 20081110
  Transmission Date: 20090506
  Serious: Yes (Other)
  Sender: FDA-Public Use
  Company Number: US-ASTRAZENECA-2008UW19635

PATIENT
  Age: 71 Year
  Sex: Female
  Weight: 54.4 kg

DRUGS (6)
  1. ARIMIDEX [Suspect]
     Route: 048
     Dates: start: 20080104, end: 20080912
  2. CARDURA [Concomitant]
  3. PENICILLIN [Concomitant]
  4. BETIMOL [Concomitant]
  5. LOMAX [Concomitant]
  6. CALCIUM [Concomitant]

REACTIONS (5)
  - COLITIS [None]
  - DIARRHOEA [None]
  - DYSPEPSIA [None]
  - HAEMORRHOIDS [None]
  - HEPATIC ENZYME INCREASED [None]
